FAERS Safety Report 5349513-9 (Version None)
Quarter: 2007Q2

REPORT INFORMATION
  Report Type: 
  Country: None (occurrence: None)
  Receive Date: 20070607
  Receipt Date: 20070529
  Transmission Date: 20071010
  Serious: Yes (Other)
  Sender: FDA-Public Use
  Company Number: PHEH2007US07894

PATIENT
  Age: 84 Year
  Sex: Female
  Weight: 50.793 kg

DRUGS (2)
  1. ZOMETA [Suspect]
     Indication: METASTASES TO BONE
     Dosage: 4 MG Q3-4 WEEKS
     Dates: start: 20060106, end: 20070507
  2. AVASTIN [Suspect]
     Indication: LUNG NEOPLASM MALIGNANT
     Dosage: 300 MG Q 2WEEKS
     Dates: start: 20060109, end: 20070226

REACTIONS (9)
  - ANAEMIA [None]
  - BONE DISORDER [None]
  - DEEP VEIN THROMBOSIS [None]
  - ERYTHEMA [None]
  - ORAL PAIN [None]
  - ORAL SOFT TISSUE DISORDER [None]
  - OSTEONECROSIS [None]
  - SWELLING [None]
  - VENOUS STENT INSERTION [None]
